FAERS Safety Report 7785442-9 (Version None)
Quarter: 2011Q3

REPORT INFORMATION
  Report Type: 
  Country: None (occurrence: None)
  Receive Date: 20110929
  Receipt Date: 20110927
  Transmission Date: 20111222
  Serious: Yes (Death, Other)
  Sender: FDA-Public Use
  Company Number: PHHY2011BR85786

PATIENT
  Sex: Female

DRUGS (12)
  1. HYDROCHLOROTHIAZIDE [Concomitant]
     Indication: HYPERTENSION
     Dosage: 25 MG, DAILY
     Route: 048
  2. TICLOPIDINE HCL [Concomitant]
     Indication: ANTICOAGULANT THERAPY
     Dosage: 250 MG, DAILY
     Route: 048
  3. EXELON [Suspect]
     Indication: COGNITIVE DISORDER
     Dosage: 4.6 MG/24 HOURS
     Route: 062
  4. EXELON [Suspect]
     Dosage: 9.5 MG/24 HOURS
     Route: 062
  5. VITAMIN TAB [Concomitant]
     Indication: MULTI-VITAMIN DEFICIENCY
     Dosage: 1 DF, DAILY
     Route: 048
  6. ATENOLOL [Concomitant]
     Indication: HYPERTENSION
     Dosage: 50 MG, DAILY
     Route: 048
  7. LISINOPRIL [Concomitant]
     Indication: HYPERTENSION
     Dosage: 20 MG,DAILY
     Route: 048
  8. SLOW-K [Concomitant]
     Indication: MUSCLE SPASMS
     Dosage: 10 MG, DAILY
     Route: 048
  9. EXELON [Suspect]
     Dosage: 9.5 MG/24 HOURS
     Route: 062
     Dates: start: 20110301
  10. SIMVASTATIN [Concomitant]
     Indication: BLOOD CHOLESTEROL
     Dosage: 10 MG, DAILY
     Route: 048
  11. EXELON [Suspect]
     Dosage: 4.6 MG/24 HOURS
     Route: 062
  12. PAROXETINE HCL [Concomitant]
     Indication: DEPRESSION
     Dosage: 20 MG, DAILY
     Route: 048

REACTIONS (5)
  - ARTERIOSCLEROSIS [None]
  - RENAL FAILURE ACUTE [None]
  - DIARRHOEA [None]
  - SEPTIC SHOCK [None]
  - DRUG INTOLERANCE [None]
